FAERS Safety Report 6762879-8 (Version None)
Quarter: 2010Q2

REPORT INFORMATION
  Report Type: 
  Country: None (occurrence: None)
  Receive Date: 20100609
  Receipt Date: 20100604
  Transmission Date: 20101027
  Serious: Yes (Hospitalization, Other)
  Sender: FDA-Public Use
  Company Number: DE-ASTRAZENECA-2010SE26122

PATIENT
  Age: 30431 Day
  Sex: Male
  Weight: 78 kg

DRUGS (12)
  1. PULMICORT [Suspect]
     Indication: CHRONIC OBSTRUCTIVE PULMONARY DISEASE
     Route: 055
     Dates: start: 20091208
  2. CANDESARTAN CILEXETIL [Suspect]
     Route: 048
     Dates: start: 20091208
  3. FORMOTEROL FUMARATE [Suspect]
     Indication: CHRONIC OBSTRUCTIVE PULMONARY DISEASE
     Route: 055
     Dates: start: 20091208
  4. RASILEZ [Suspect]
     Indication: HYPERTENSION
     Route: 065
     Dates: start: 20090211, end: 20091208
  5. HYDROCHLOROTHIAZIDE [Suspect]
     Indication: HYPERTENSION
     Route: 048
     Dates: start: 20091208
  6. ANGIOTENSIN CONVERTING ENZYME BLOCKERS [Concomitant]
  7. ALPHA RECEPTOR BLOCKER [Concomitant]
  8. DIURETICS [Concomitant]
  9. PLATELET AGGREGATION INHIBITORS [Concomitant]
  10. ACETYLCYSTEINE [Concomitant]
     Dates: start: 20091208, end: 20091217
  11. ASPIRIN [Concomitant]
     Dates: start: 20091208
  12. LERCANIDIPINE [Concomitant]
     Dates: start: 20091208

REACTIONS (3)
  - ANGINA PECTORIS [None]
  - AORTIC VALVE INCOMPETENCE [None]
  - BLOOD PRESSURE SYSTOLIC INCREASED [None]
